FAERS Safety Report 19243840 (Version 9)
Quarter: 2024Q2

REPORT INFORMATION
  Report Type: Report from Study
  Country: IL (occurrence: IL)
  Receive Date: 20210511
  Receipt Date: 20240620
  Transmission Date: 20240716
  Serious: Yes (Other)
  Sender: FDA-Public Use
  Company Number: IL-19K-082-2985883-00

PATIENT
  Age: 77 Year
  Sex: Female
  Weight: 72 kg

DRUGS (23)
  1. VENETOCLAX [Suspect]
     Active Substance: VENETOCLAX
     Indication: Chronic lymphocytic leukaemia
     Dosage: PER TITRATION SCHEME THEN DOSE INCREASE
     Route: 048
     Dates: start: 20190909, end: 20190914
  2. VENETOCLAX [Suspect]
     Active Substance: VENETOCLAX
     Indication: Chronic lymphocytic leukaemia
     Dosage: PER TITRATION SCHEME THEN DOSE INCREASE
     Route: 048
     Dates: start: 20190915, end: 20190921
  3. VENETOCLAX [Suspect]
     Active Substance: VENETOCLAX
     Indication: Chronic lymphocytic leukaemia
     Dosage: PER TITRATION SCHEME THEN DOSE INCREASE
     Route: 048
     Dates: start: 20190922, end: 20191001
  4. VENETOCLAX [Suspect]
     Active Substance: VENETOCLAX
     Indication: Chronic lymphocytic leukaemia
     Dosage: PER TITRATION SCHEME THEN DOSE INCREASE
     Route: 048
     Dates: start: 20191002, end: 20191009
  5. VENETOCLAX [Suspect]
     Active Substance: VENETOCLAX
     Indication: Chronic lymphocytic leukaemia
     Dosage: 400 MILLIGRAM
     Route: 048
     Dates: start: 20191010, end: 20191117
  6. VENETOCLAX [Suspect]
     Active Substance: VENETOCLAX
     Indication: Chronic lymphocytic leukaemia
     Dosage: 300 MILLIGRAM
     Route: 048
     Dates: start: 20191118
  7. ALLOPURINOL [Concomitant]
     Active Substance: ALLOPURINOL
     Indication: Prophylaxis
     Dates: start: 20190902
  8. HYDRATION VITAMIN [Concomitant]
     Indication: Product used for unknown indication
     Route: 042
     Dates: start: 20190909
  9. HYDRATION VITAMIN [Concomitant]
     Indication: Product used for unknown indication
     Route: 042
     Dates: start: 20190915
  10. HYDRATION VITAMIN [Concomitant]
     Indication: Product used for unknown indication
     Route: 042
     Dates: start: 20190922
  11. HYDRATION VITAMIN [Concomitant]
     Indication: Product used for unknown indication
     Route: 042
     Dates: start: 20191002
  12. BISOPROLOL FUMARATE [Concomitant]
     Active Substance: BISOPROLOL FUMARATE
     Indication: Hypertension
  13. CODEINE PHOSPHATE [Concomitant]
     Active Substance: CODEINE PHOSPHATE
     Indication: Pain
     Dates: start: 20191201
  14. DIGOXIN [Concomitant]
     Active Substance: DIGOXIN
     Indication: Cardiac disorder
     Dates: start: 2017
  15. Fusid [Concomitant]
     Indication: Cardiovascular event prophylaxis
     Dates: start: 20190206
  16. LOSARTAN POTASSIUM [Concomitant]
     Active Substance: LOSARTAN POTASSIUM
     Indication: Cardiac disorder
     Dates: start: 20191219
  17. NEXIUM [Concomitant]
     Active Substance: ESOMEPRAZOLE MAGNESIUM
     Indication: Prophylaxis against gastrointestinal ulcer
     Dates: start: 20190118
  18. PRADAXA [Concomitant]
     Active Substance: DABIGATRAN ETEXILATE MESYLATE
     Indication: Cerebrovascular accident prophylaxis
     Dates: start: 20190118
  19. Recital [Concomitant]
     Indication: Prophylaxis
     Dates: start: 20190118
  20. COVID-19 vaccine [Concomitant]
     Indication: COVID-19 prophylaxis
     Dosage: TIME INTERVAL: 1 TOTAL
     Route: 030
     Dates: start: 20210107, end: 20210107
  21. COVID-19 vaccine [Concomitant]
     Indication: COVID-19 prophylaxis
     Dosage: TIME INTERVAL: 1 TOTAL
     Route: 030
     Dates: start: 20210128, end: 20210128
  22. HYDROCORTISONE [Concomitant]
     Active Substance: HYDROCORTISONE\HYDROCORTISONE ACETATE
     Indication: Stridor
     Dates: start: 20191002, end: 20191002
  23. VENOFER [Concomitant]
     Active Substance: IRON SUCROSE
     Indication: Iron deficiency
     Dates: start: 20191118

REACTIONS (15)
  - Humerus fracture [Recovered/Resolved]
  - Stridor [Recovered/Resolved]
  - Iron deficiency anaemia [Recovered/Resolved]
  - Headache [Recovered/Resolved]
  - Dyspnoea [Recovered/Resolved]
  - Dyspnoea [Recovered/Resolved]
  - Neutrophil count decreased [Recovered/Resolved]
  - Neutrophil count decreased [Recovered/Resolved]
  - Neutrophil count decreased [Recovered/Resolved]
  - Lower limb fracture [Recovered/Resolved]
  - Neutrophil count decreased [Recovered/Resolved]
  - Nausea [Recovered/Resolved]
  - Nausea [Recovered/Resolved]
  - Anaemia [Recovered/Resolved]
  - Fall [Recovered/Resolved]

NARRATIVE: CASE EVENT DATE: 20190912
